FAERS Safety Report 17064195 (Version 1)
Quarter: 2019Q4

REPORT INFORMATION
  Report Type: Spontaneous
  Country: NL (occurrence: NL)
  Receive Date: 20191122
  Receipt Date: 20191122
  Transmission Date: 20200122
  Serious: Yes (Life-Threatening, Hospitalization)
  Sender: FDA-Public Use
  Company Number: NL-AMERIGEN PHARMACEUTICALS, INC-2019AMG000048

PATIENT

DRUGS (1)
  1. TRANEXAMIC ACID UNKNOWN [Suspect]
     Active Substance: TRANEXAMIC ACID
     Indication: PRODUCT USED FOR UNKNOWN INDICATION
     Dosage: UNK
     Route: 042

REACTIONS (9)
  - PCO2 abnormal [Unknown]
  - Wrong product administered [Unknown]
  - Product packaging confusion [Unknown]
  - Haemodynamic instability [Unknown]
  - Heart rate irregular [Unknown]
  - Muscular weakness [Unknown]
  - Pain [Unknown]
  - Myoclonus [Not Recovered/Not Resolved]
  - Blood pressure fluctuation [Unknown]
